FAERS Safety Report 18121442 (Version 1)
Quarter: 2020Q3

REPORT INFORMATION
  Report Type: Spontaneous
  Country: US (occurrence: US)
  Receive Date: 20200807
  Receipt Date: 20200807
  Transmission Date: 20201103
  Serious: No
  Sender: FDA-Public Use
  Company Number: US-JNJFOC-20200801858

PATIENT
  Age: 53 Year
  Sex: Male
  Weight: 88.53 kg

DRUGS (1)
  1. ZYRTEC [Suspect]
     Active Substance: CETIRIZINE HYDROCHLORIDE
     Indication: HYPERSENSITIVITY
     Dosage: 1 TABLET; DATE LAST ADMINISTERED: /JUL/2020
     Route: 048
     Dates: start: 20200719

REACTIONS (1)
  - Drug ineffective [Unknown]
